FAERS Safety Report 6346961-5 (Version None)
Quarter: 2009Q3

REPORT INFORMATION
  Report Type: 
  Country: None (occurrence: None)
  Receive Date: 20090908
  Receipt Date: 20090908
  Transmission Date: 20100115
  Serious: Yes (Life-Threatening, Other)
  Sender: FDA-Public Use
  Company Number: None

PATIENT
  Age: 56 Year
  Sex: Female
  Weight: 68.0396 kg

DRUGS (1)
  1. FENTANYL PATCH-3 DAY 25 MCG/ H WATSON LABS [Suspect]
     Indication: BACK INJURY
     Dosage: 1 PATCH EVERY 72 HRS TRANSDERMAL 15 DAY-5 PATCHES
     Route: 062
     Dates: start: 20081223, end: 20081223

REACTIONS (7)
  - ASTHENIA [None]
  - HEART RATE INCREASED [None]
  - HYPERHIDROSIS [None]
  - INCOHERENT [None]
  - MALAISE [None]
  - SYNCOPE [None]
  - WITHDRAWAL SYNDROME [None]
